FAERS Safety Report 18768034 (Version 1)
Quarter: 2021Q1

REPORT INFORMATION
  Report Type: Spontaneous
  Country: US (occurrence: US)
  Receive Date: 20210120
  Receipt Date: 20210120
  Transmission Date: 20210419
  Serious: Yes (Other)
  Sender: FDA-Public Use
  Company Number: None

PATIENT
  Age: 51 Year
  Sex: Male

DRUGS (2)
  1. DEXAMETHASONE (DEXAMETHASONE 6MG TAB) [Suspect]
     Active Substance: DEXAMETHASONE
     Indication: COVID-19 PNEUMONIA
     Dosage: ?          OTHER FREQUENCY:AM;?
     Route: 048
     Dates: start: 20201224, end: 20201229
  2. PREDNISONE (PREDNISONE 20MG TAB) [Suspect]
     Active Substance: PREDNISONE
     Indication: BACK PAIN
     Dates: start: 20201101, end: 20201111

REACTIONS (2)
  - Rash [None]
  - Herpes zoster [None]

NARRATIVE: CASE EVENT DATE: 20210101
